FAERS Safety Report 17440284 (Version 2)
Quarter: 2020Q1

REPORT INFORMATION
  Report Type: Spontaneous
  Country: US (occurrence: US)
  Receive Date: 20200220
  Receipt Date: 20200330
  Transmission Date: 20200409
  Serious: No
  Sender: FDA-Public Use
  Company Number: US-PFIZER INC-2020074708

PATIENT
  Age: 60 Year
  Sex: Female

DRUGS (1)
  1. IBRANCE [Suspect]
     Active Substance: PALBOCICLIB
     Dosage: 100 MG, CYCLIC [QD (ONCE A DAY) X 21 DAYS, 7 DAYS OFF]
     Route: 048

REACTIONS (2)
  - Neoplasm progression [Unknown]
  - Muscle spasms [Unknown]
